FAERS Safety Report 25170077 (Version 2)
Quarter: 2025Q3

REPORT INFORMATION
  Report Type: Spontaneous
  Country: AR (occurrence: AR)
  Receive Date: 20250407
  Receipt Date: 20250909
  Transmission Date: 20251021
  Serious: No
  Sender: SANDOZ
  Company Number: AR-SANDOZ-SDZ2025AR020699

PATIENT
  Sex: Male

DRUGS (1)
  1. HYRIMOZ [Suspect]
     Active Substance: ADALIMUMAB-ADAZ
     Indication: Product used for unknown indication
     Route: 065

REACTIONS (2)
  - Injection site discharge [Unknown]
  - Device difficult to use [Unknown]
